FAERS Safety Report 20838272 (Version 1)
Quarter: 2022Q2

REPORT INFORMATION
  Report Type: Spontaneous
  Country: US (occurrence: US)
  Receive Date: 20220517
  Receipt Date: 20220517
  Transmission Date: 20220721
  Serious: Yes (Life-Threatening, Hospitalization)
  Sender: FDA-Public Use
  Company Number: US-BAYER-2022A065782

PATIENT
  Age: 25 Year
  Sex: Female

DRUGS (1)
  1. GADOBUTROL [Suspect]
     Active Substance: GADOBUTROL
     Dosage: 6 ML, ONCE

REACTIONS (3)
  - Acute respiratory distress syndrome [Recovered/Resolved]
  - Shock [Recovered/Resolved]
  - Disseminated intravascular coagulation [Recovered/Resolved]
